FAERS Safety Report 5331406-4 (Version None)
Quarter: 2007Q2

REPORT INFORMATION
  Report Type: 
  Country: None (occurrence: None)
  Receive Date: 20070522
  Receipt Date: 20070514
  Transmission Date: 20071010
  Serious: Yes (Death, Hospitalization, Disabling)
  Sender: FDA-Public Use
  Company Number: US-ELI_LILLY_AND_COMPANY-US200603006928

PATIENT
  Age: 83 Year
  Sex: Male

DRUGS (1)
  1. FORTEO [Suspect]
     Indication: RIB FRACTURE
     Dosage: UNK, UNK
     Dates: start: 20060215, end: 20070301

REACTIONS (3)
  - EMPHYSEMA [None]
  - MALAISE [None]
  - SURGERY [None]
